FAERS Safety Report 8495986-2 (Version None)
Quarter: 2012Q3

REPORT INFORMATION
  Report Type: 
  Country: None (occurrence: None)
  Receive Date: 20120709
  Receipt Date: 20120523
  Transmission Date: 20120928
  Serious: Yes (Other)
  Sender: FDA-Public Use
  Company Number: DE-GLAXOSMITHKLINE-D0075701A

PATIENT
  Sex: Female

DRUGS (1)
  1. FLUTICASONE PROPIONATE/SALMETEROL [Suspect]
     Route: 055
     Dates: start: 19960101

REACTIONS (4)
  - ASTHMA [None]
  - WHEEZING [None]
  - DYSPNOEA [None]
  - UNDERDOSE [None]
